FAERS Safety Report 18282046 (Version 4)
Quarter: 2021Q1

REPORT INFORMATION
  Report Type: Report from Study
  Country: JP (occurrence: JP)
  Receive Date: 20200918
  Receipt Date: 20210318
  Transmission Date: 20210419
  Serious: Yes (Hospitalization, Other)
  Sender: FDA-Public Use
  Company Number: JP-CELLTRION INC.-2020JP027061

PATIENT

DRUGS (17)
  1. CT?P6 [Suspect]
     Active Substance: INVESTIGATIONAL BIOSIMILARS
     Dosage: 360 MG, QD (EVERY ADMINISTRATION)
     Route: 041
     Dates: start: 20200521, end: 20200521
  2. TAKECAB [Concomitant]
     Active Substance: VONOPRAZAN FUMARATE
     Indication: PROPHYLAXIS AGAINST GASTROINTESTINAL ULCER
     Dosage: UNK
  3. GLACTIV [Concomitant]
     Active Substance: SITAGLIPTIN
     Indication: DIABETES MELLITUS
     Dosage: UNK
  4. CT?P6 [Suspect]
     Active Substance: INVESTIGATIONAL BIOSIMILARS
     Indication: HER2 POSITIVE GASTRIC CANCER
     Dosage: 480 MG, QD (EVERY ADMINISTRATION)
     Route: 041
     Dates: start: 20200305, end: 20200305
  5. CT?P6 [Suspect]
     Active Substance: INVESTIGATIONAL BIOSIMILARS
     Dosage: 360 MG, QD (EVERY ADMINISTRATION)
     Route: 041
     Dates: start: 20200402, end: 20200402
  6. TEGAFUR GIMERACIL AND OTERACIL POTASSIUM [Suspect]
     Active Substance: GIMERACIL\OTERACIL\TEGAFUR
     Dosage: 100 MILLIGRAM, QD
     Route: 048
     Dates: start: 20200423, end: 20200506
  7. CT?P6 [Suspect]
     Active Substance: INVESTIGATIONAL BIOSIMILARS
     Dosage: 360 MG, QD (EVERY ADMINISTRATION)
     Route: 041
     Dates: start: 20200423, end: 20200423
  8. TEGAFUR GIMERACIL AND OTERACIL POTASSIUM [Suspect]
     Active Substance: GIMERACIL\OTERACIL\TEGAFUR
     Dosage: 100 MILLIGRAM, QD
     Route: 048
     Dates: start: 20200521, end: 20200603
  9. BISONO [Concomitant]
     Active Substance: BISOPROLOL
     Indication: HYPERTENSION
     Dosage: UNK
  10. LOPERAMIDE HYDROCHLORIDE. [Concomitant]
     Active Substance: LOPERAMIDE HYDROCHLORIDE
     Indication: DIARRHOEA
     Dosage: UNK
     Dates: start: 20200305
  11. TEGAFUR GIMERACIL AND OTERACIL POTASSIUM [Suspect]
     Active Substance: GIMERACIL\OTERACIL\TEGAFUR
     Indication: HER2 POSITIVE GASTRIC CANCER
     Dosage: 100 MILLIGRAM, QD
     Route: 048
     Dates: start: 20200305, end: 20200318
  12. TERAMURO [Concomitant]
     Indication: HYPERTENSION
     Dosage: UNK
  13. TEGAFUR GIMERACIL AND OTERACIL POTASSIUM [Suspect]
     Active Substance: GIMERACIL\OTERACIL\TEGAFUR
     Dosage: 100 MILLIGRAM, QD
     Route: 048
     Dates: start: 20200402, end: 20200412
  14. CILOSTAZOL. [Concomitant]
     Active Substance: CILOSTAZOL
     Indication: CEREBRAL INFARCTION
     Dosage: UNK
  15. ROSUVASTATIN. [Concomitant]
     Active Substance: ROSUVASTATIN
     Indication: DYSLIPIDAEMIA
     Dosage: UNK
  16. MAGNESIUM SULFATE HYDRATE [Concomitant]
     Active Substance: MAGNESIUM SULFATE HEPTAHYDRATE
     Indication: HYPOMAGNESAEMIA
     Dosage: UNK
     Dates: start: 20200305, end: 20200521
  17. CLOPIDOGREL [Concomitant]
     Active Substance: CLOPIDOGREL BISULFATE
     Indication: CEREBRAL INFARCTION
     Dosage: UNK

REACTIONS (7)
  - Platelet count decreased [Recovered/Resolved]
  - Haemoglobin decreased [Recovering/Resolving]
  - Volvulus [Recovered/Resolved]
  - Off label use [Unknown]
  - Hypokalaemia [Recovering/Resolving]
  - Hypomagnesaemia [Recovered/Resolved]
  - Diarrhoea [Recovering/Resolving]

NARRATIVE: CASE EVENT DATE: 20200306
